FAERS Safety Report 5042078-0 (Version None)
Quarter: 2006Q2

REPORT INFORMATION
  Report Type: 
  Country: None (occurrence: None)
  Receive Date: 20060630
  Receipt Date: 20060615
  Transmission Date: 20061013
  Serious: Yes (Hospitalization)
  Sender: FDA-Public Use
  Company Number: S06-FRA-02606-01

PATIENT
  Age: 84 Year
  Sex: Female

DRUGS (3)
  1. MEMANTINE HCL [Suspect]
     Indication: DEMENTIA ALZHEIMER'S TYPE
  2. ARICEPT [Suspect]
     Indication: DEMENTIA ALZHEIMER'S TYPE
  3. ATACAND [Concomitant]

REACTIONS (4)
  - GRAND MAL CONVULSION [None]
  - MIOSIS [None]
  - NUCHAL RIGIDITY [None]
  - PUPIL FIXED [None]
